FAERS Safety Report 4285155-4 (Version None)
Quarter: 2004Q1

REPORT INFORMATION
  Report Type: 
  Country: None (occurrence: None)
  Receive Date: 20040202
  Receipt Date: 20040122
  Transmission Date: 20041129
  Serious: Yes (Other)
  Sender: FDA-Public Use
  Company Number: 138165USA

PATIENT
  Age: 5 Year
  Sex: Male

DRUGS (1)
  1. COPAXONE [Suspect]
     Dosage: 20 MILLIGRAM ONCE SUBCUTANEOUS
     Route: 058
     Dates: start: 20020101, end: 20020101

REACTIONS (2)
  - CHILD ABUSE [None]
  - LEARNING DISORDER [None]
